FAERS Safety Report 21989785 (Version 1)
Quarter: 2023Q1

REPORT INFORMATION
  Report Type: Spontaneous
  Country: NO (occurrence: NO)
  Receive Date: 20230214
  Receipt Date: 20230214
  Transmission Date: 20230417
  Serious: Yes (Death, Hospitalization, Other)
  Sender: FDA-Public Use
  Company Number: None

PATIENT
  Age: 80 Year
  Sex: Male

DRUGS (5)
  1. OPDIVO [Suspect]
     Active Substance: NIVOLUMAB
     Indication: Malignant melanoma
     Dates: start: 20220225, end: 20220325
  2. INFLIXIMAB [Suspect]
     Active Substance: INFLIXIMAB
     Indication: Colitis
     Dosage: ADMINISTERED AS TWO DOSES OF 10 MG/KG IN /SEP/2022.
     Dates: start: 20220901, end: 20220930
  3. UNSPECIFIED INGREDIENT [Suspect]
     Active Substance: UNSPECIFIED INGREDIENT
     Indication: Product used for unknown indication
  4. PREDNISOLONE [Suspect]
     Active Substance: PREDNISOLONE
     Indication: Colitis
     Dosage: HIGH DOSE
     Dates: start: 202209, end: 20221027
  5. CEFOTAXIME [Concomitant]
     Active Substance: CEFOTAXIME SODIUM
     Indication: Bacterial infection
     Dates: start: 20221030

REACTIONS (14)
  - Colitis [Fatal]
  - Hepatitis [Fatal]
  - Dermatitis [Fatal]
  - Thrombocytopenia [Fatal]
  - Fatigue [Unknown]
  - Neutropenia [Fatal]
  - Pneumonitis [Fatal]
  - Pancreatitis necrotising [Fatal]
  - Bronchopulmonary aspergillosis [Fatal]
  - Malignant neoplasm progression [Fatal]
  - Fat necrosis [Fatal]
  - Acute kidney injury [Fatal]
  - Immunosuppression [Unknown]
  - COVID-19 [Unknown]

NARRATIVE: CASE EVENT DATE: 20220101
